FAERS Safety Report 21936099 (Version 1)
Quarter: 2023Q1

REPORT INFORMATION
  Report Type: Spontaneous
  Country: US (occurrence: None)
  Receive Date: 20230131
  Receipt Date: 20230131
  Transmission Date: 20230417
  Serious: No
  Sender: FDA-Public Use
  Company Number: None

PATIENT
  Sex: Male

DRUGS (1)
  1. ABIRATERONE [Suspect]
     Active Substance: ABIRATERONE
     Dosage: FREQUENCY : TWICE A DAY;?
     Route: 048

REACTIONS (11)
  - Fall [None]
  - Head injury [None]
  - Blood glucose abnormal [None]
  - Hypersomnia [None]
  - Dry skin [None]
  - Erythema [None]
  - Skin exfoliation [None]
  - Micturition disorder [None]
  - Hypoaesthesia [None]
  - Thrombosis [None]
  - Cystitis radiation [None]
